FAERS Safety Report 13238339 (Version 2)
Quarter: 2017Q1

REPORT INFORMATION
  Report Type: Spontaneous
  Country: DE (occurrence: DE)
  Receive Date: 20170216
  Receipt Date: 20170216
  Transmission Date: 20170428
  Serious: Yes (Other)
  Sender: FDA-Public Use
  Company Number: DE-BAYER-2017-007431

PATIENT
  Sex: Female

DRUGS (1)
  1. JAYDESS [Suspect]
     Active Substance: LEVONORGESTREL
     Indication: CONTRACEPTION
     Dosage: 14 MCG/24HR, CONT
     Route: 015
     Dates: start: 20160513

REACTIONS (10)
  - Device dislocation [None]
  - Uterine contractions during pregnancy [None]
  - Procedural pain [None]
  - Device breakage [None]
  - Drug ineffective [None]
  - Pregnancy with contraceptive device [None]
  - Abdominal pain lower [None]
  - Complication of device removal [None]
  - Amniotic cavity disorder [None]
  - Device difficult to use [None]
